FAERS Safety Report 5626621-6 (Version None)
Quarter: 2008Q1

REPORT INFORMATION
  Report Type: 
  Country: None (occurrence: None)
  Receive Date: 20080214
  Receipt Date: 20080204
  Transmission Date: 20080703
  Serious: Yes (Death)
  Sender: FDA-Public Use
  Company Number: US-SANOFI-SYNTHELABO-A03200706872

PATIENT
  Sex: Male

DRUGS (6)
  1. CYMBALTA [Concomitant]
     Indication: PANIC DISORDER
     Route: 048
     Dates: start: 20070904
  2. CYMBALTA [Concomitant]
     Indication: DEPRESSION
     Route: 048
     Dates: start: 20070904
  3. AMBIEN [Suspect]
     Indication: INSOMNIA
     Route: 048
     Dates: start: 20071120
  4. VICODIN [Interacting]
     Indication: PAIN
     Route: 065
     Dates: start: 20071119
  5. LEXAPRO [Interacting]
     Indication: DEPRESSION
     Route: 048
     Dates: start: 20071119
  6. KLONOPIN [Interacting]
     Indication: PANIC DISORDER
     Dosage: 1 MG QID PRN
     Route: 048
     Dates: start: 20070402

REACTIONS (1)
  - ACCIDENTAL OVERDOSE [None]
